FAERS Safety Report 8162470-5 (Version None)
Quarter: 2012Q1

REPORT INFORMATION
  Report Type: 
  Country: None (occurrence: None)
  Receive Date: 20120224
  Receipt Date: 20120224
  Transmission Date: 20120608
  Serious: Yes (Other)
  Sender: FDA-Public Use
  Company Number: None

PATIENT
  Sex: Male
  Weight: 73.028 kg

DRUGS (2)
  1. CYMBALTA [Concomitant]
     Dosage: 20 MG
     Route: 048
  2. CYMBALTA [Suspect]
     Indication: MIGRAINE PROPHYLAXIS
     Dosage: 20.0 MG
     Route: 048
     Dates: start: 20120127, end: 20120221

REACTIONS (1)
  - URINARY RETENTION [None]
